FAERS Safety Report 16827387 (Version 1)
Quarter: 2019Q3

REPORT INFORMATION
  Report Type: Report from Study
  Country: None (occurrence: US)
  Receive Date: 20190919
  Receipt Date: 20190919
  Transmission Date: 20191005
  Serious: Yes (Other)
  Sender: FDA-Public Use
  Company Number: US-ABBVIE-19K-163-2870299-00

PATIENT
  Age: 59 Year
  Sex: Female

DRUGS (1)
  1. HUMIRA [Suspect]
     Active Substance: ADALIMUMAB
     Indication: PSORIATIC ARTHROPATHY
     Route: 058
     Dates: start: 201907, end: 201908

REACTIONS (25)
  - Mobility decreased [Unknown]
  - Macular degeneration [Not Recovered/Not Resolved]
  - Somnolence [Not Recovered/Not Resolved]
  - Inflammation [Recovering/Resolving]
  - Stress [Unknown]
  - Pharyngeal ulceration [Not Recovered/Not Resolved]
  - Gastrointestinal pain [Not Recovered/Not Resolved]
  - Vitreous floaters [Unknown]
  - Chest pain [Not Recovered/Not Resolved]
  - Pre-existing condition improved [Recovering/Resolving]
  - Wrong technique in product usage process [Unknown]
  - Heart rate increased [Not Recovered/Not Resolved]
  - Pain [Unknown]
  - Therapeutic response shortened [Not Recovered/Not Resolved]
  - Musculoskeletal pain [Not Recovered/Not Resolved]
  - Fatigue [Not Recovered/Not Resolved]
  - Tongue discomfort [Unknown]
  - Pain in extremity [Not Recovered/Not Resolved]
  - Lip swelling [Unknown]
  - Cardiac flutter [Not Recovered/Not Resolved]
  - Therapeutic response unexpected [Unknown]
  - Oesophageal spasm [Unknown]
  - Tremor [Not Recovered/Not Resolved]
  - Tongue ulceration [Not Recovered/Not Resolved]
  - Pain [Not Recovered/Not Resolved]

NARRATIVE: CASE EVENT DATE: 2019
